FAERS Safety Report 7618539-4 (Version None)
Quarter: 2011Q3

REPORT INFORMATION
  Report Type: 
  Country: None (occurrence: None)
  Receive Date: 20110718
  Receipt Date: 20030423
  Transmission Date: 20111222
  Serious: Yes (Hospitalization)
  Sender: FDA-Public Use
  Company Number: PHFR2003GB01800

PATIENT
  Sex: Female

DRUGS (7)
  1. DIGOXIN [Suspect]
  2. CLOZAPINE [Suspect]
     Indication: SCHIZOPHRENIA
     Dosage: 350 MG, QD
     Route: 048
     Dates: start: 19990531
  3. SENNA GLYCOSIDES (CA SALTS OF PURIFIED S [Suspect]
  4. CLOZAPINE [Suspect]
     Dosage: 700MG OVERDOSE
     Dates: start: 20030420
  5. DOCUSATE SODIUM [Suspect]
  6. FUROSEMIDE [Suspect]
  7. AMLODIPINE [Suspect]

REACTIONS (2)
  - DRUG LEVEL INCREASED [None]
  - OVERDOSE [None]
